FAERS Safety Report 5679878-X (Version None)
Quarter: 2008Q1

REPORT INFORMATION
  Report Type: 
  Country: None (occurrence: None)
  Receive Date: 20080324
  Receipt Date: 20080313
  Transmission Date: 20080703
  Serious: No
  Sender: FDA-Public Use
  Company Number: 2007-167128-NL

PATIENT
  Age: 58 Year
  Sex: Female

DRUGS (10)
  1. MIRTAZAPINE [Suspect]
     Indication: DEPRESSION
     Dosage: DF/15 MG/30 MG/45 MG ORAL
     Route: 048
     Dates: start: 20070112, end: 20070319
  2. MIRTAZAPINE [Suspect]
     Indication: DEPRESSION
     Dosage: DF/15 MG/30 MG/45 MG ORAL
     Route: 048
     Dates: start: 20070320, end: 20070801
  3. MIRTAZAPINE [Suspect]
     Indication: DEPRESSION
     Dosage: DF/15 MG/30 MG/45 MG ORAL
     Route: 048
     Dates: start: 20070801, end: 20080207
  4. MIRTAZAPINE [Suspect]
     Indication: DEPRESSION
     Dosage: DF/15 MG/30 MG/45 MG ORAL
     Route: 048
     Dates: start: 20041029
  5. DICLOFENAC SODIUM [Concomitant]
  6. LANSOPRAZOLE [Concomitant]
  7. TOLTERODINE TARTRATE [Concomitant]
  8. CLONIDINE HCL [Concomitant]
  9. BECLOMETHASONE DIPROPIONATE [Concomitant]
  10. SALBUTAMOL [Concomitant]

REACTIONS (2)
  - ELECTROCARDIOGRAM QT PROLONGED [None]
  - LOWER RESPIRATORY TRACT INFECTION [None]
